FAERS Safety Report 9236170 (Version 1)
Quarter: 2013Q2

REPORT INFORMATION
  Report Type: Spontaneous
  Country: US (occurrence: None)
  Receive Date: 20130416
  Receipt Date: 20130416
  Transmission Date: 20140414
  Serious: Yes (Life-Threatening, Disabling, Other)
  Sender: FDA-Public Use
  Company Number: None

PATIENT
  Age: 56 Year
  Sex: Female
  Weight: 70.31 kg

DRUGS (1)
  1. REMICADE [Suspect]
     Indication: RHEUMATOID ARTHRITIS
     Dosage: 100 MG 400 MG IV
     Dates: start: 201302, end: 20130314

REACTIONS (5)
  - Blood pressure decreased [None]
  - Blood glucose fluctuation [None]
  - Loss of consciousness [None]
  - Fatigue [None]
  - Blindness [None]
